FAERS Safety Report 9411982 (Version 3)
Quarter: 2013Q3

REPORT INFORMATION
  Report Type: Spontaneous
  Country: IE (occurrence: IE)
  Receive Date: 20130722
  Receipt Date: 20130826
  Transmission Date: 20140515
  Serious: Yes (Other)
  Sender: FDA-Public Use
  Company Number: IE-JNJFOC-20130707170

PATIENT
  Age: 41 Year
  Sex: Female

DRUGS (3)
  1. XEPLION [Suspect]
     Indication: SCHIZOPHRENIA
     Route: 030
     Dates: start: 20120117
  2. INVEGA [Suspect]
     Indication: SCHIZOPHRENIA
     Route: 048
     Dates: start: 20080220
  3. PAROXETINE [Concomitant]
     Indication: DEPRESSION
     Route: 065
     Dates: start: 20060601

REACTIONS (2)
  - Liver function test abnormal [Recovered/Resolved]
  - Liver disorder [Recovered/Resolved]
